FAERS Safety Report 5228694-1 (Version None)
Quarter: 2007Q1

REPORT INFORMATION
  Report Type: 
  Country: None (occurrence: None)
  Receive Date: 20070205
  Receipt Date: 20070125
  Transmission Date: 20070707
  Serious: Yes (Hospitalization)
  Sender: FDA-Public Use
  Company Number: PHBS2006DK12344

PATIENT
  Sex: Male

DRUGS (6)
  1. LEPONEX [Suspect]
     Indication: SCHIZOPHRENIA
     Dosage: 100 MG IN MORNING, 200 MG IN EVENING
     Route: 065
     Dates: start: 20030101, end: 20030101
  2. LEPONEX [Suspect]
     Dosage: 200 MG, QHS
     Route: 065
     Dates: start: 20030101
  3. ZYPREXA [Concomitant]
     Dates: start: 20000101
  4. SEROQUEL [Concomitant]
     Dates: start: 20020101
  5. ABILIFY [Concomitant]
     Dosage: 30 MG, QD
     Dates: start: 20030101
  6. ABILIFY [Concomitant]
     Dosage: 45 MG, QD
     Dates: start: 20040101

REACTIONS (7)
  - HAEMOGLOBIN INCREASED [None]
  - HALLUCINATION, AUDITORY [None]
  - HEART RATE INCREASED [None]
  - LEUKOCYTOSIS [None]
  - POLYCYTHAEMIA VERA [None]
  - SPLENOMEGALY [None]
  - TACHYCARDIA [None]
